FAERS Safety Report 9610962 (Version 1)
Quarter: 2013Q4

REPORT INFORMATION
  Report Type: Spontaneous
  Country: JP (occurrence: JP)
  Receive Date: 20131009
  Receipt Date: 20131009
  Transmission Date: 20140711
  Serious: Yes (Other)
  Sender: FDA-Public Use
  Company Number: PHHY2013JP111879

PATIENT
  Age: 64 Year
  Sex: Male

DRUGS (3)
  1. OXALIPLATIN [Suspect]
     Indication: COLORECTAL CANCER METASTATIC
     Dosage: 130 MG/M2, CYCLIC
     Route: 042
  2. BEVACIZUMAB [Suspect]
     Indication: COLORECTAL CANCER METASTATIC
     Dosage: 7.5 MG/KG, CYCLIC
     Route: 042
  3. GIMERACIL W/OTERACIL POTASSIUM/TEGAFUR [Suspect]
     Indication: COLORECTAL CANCER METASTATIC
     Dosage: 80 MG/M2, CYCLIC

REACTIONS (1)
  - Hepatic steatosis [Unknown]
